FAERS Safety Report 24059610 (Version 2)
Quarter: 2024Q3

REPORT INFORMATION
  Report Type: Spontaneous
  Country: CH (occurrence: CH)
  Receive Date: 20240708
  Receipt Date: 20240716
  Transmission Date: 20241017
  Serious: Yes (Other)
  Sender: ROCHE
  Company Number: CH-ROCHE-10000009411

PATIENT
  Age: 70 Year
  Sex: Female

DRUGS (5)
  1. ERLOTINIB [Suspect]
     Active Substance: ERLOTINIB
     Indication: Non-small cell lung cancer metastatic
     Route: 065
     Dates: start: 201511
  2. CARBOPLATIN [Concomitant]
     Active Substance: CARBOPLATIN
  3. PEMETREXED [Concomitant]
     Active Substance: PEMETREXED
  4. CRIZOTINIB [Concomitant]
     Active Substance: CRIZOTINIB
     Dates: start: 201902
  5. AFATINIB [Concomitant]
     Active Substance: AFATINIB

REACTIONS (1)
  - Disease progression [Unknown]
